FAERS Safety Report 8508554-0 (Version None)
Quarter: 2012Q3

REPORT INFORMATION
  Report Type: 
  Country: None (occurrence: None)
  Receive Date: 20120713
  Receipt Date: 20110209
  Transmission Date: 20120928
  Serious: No
  Sender: FDA-Public Use
  Company Number: US-BAYER-2011-014359

PATIENT
  Age: 81 Year
  Sex: Female

DRUGS (1)
  1. MAGNEVIST [Suspect]
     Dosage: UNK, ONCE
     Route: 042
     Dates: start: 20110208, end: 20110208

REACTIONS (1)
  - NO ADVERSE EVENT [None]
